FAERS Safety Report 19820568 (Version 1)
Quarter: 2021Q3

REPORT INFORMATION
  Report Type: Spontaneous
  Country: US (occurrence: US)
  Receive Date: 20210911
  Receipt Date: 20210911
  Transmission Date: 20211014
  Serious: Yes (Other)
  Sender: FDA-Public Use
  Company Number: None

PATIENT
  Age: 37 Year
  Sex: Female
  Weight: 93.15 kg

DRUGS (9)
  1. COPPER NON HORMONAL IUD [Concomitant]
  2. NATTO?SERRA [Concomitant]
  3. OMEPRAZOLE. [Concomitant]
     Active Substance: OMEPRAZOLE
  4. CLOBETASOL [Concomitant]
     Active Substance: CLOBETASOL
  5. VITAMIN C/D/ZINC SUPPLEMENT [Concomitant]
  6. VITAMIN B COMPLEX [Concomitant]
     Active Substance: CYANOCOBALAMIN\DEXPANTHENOL\NIACINAMIDE\PYRIDOXINE HYDROCHLORIDE\RIBOFLAVIN 5^-PHOSPHATE SODIUM\THIAMINE HYDROCHLORIDE\VITAMIN B COMPLEX
  7. REGEN?COV [Suspect]
     Active Substance: CASIRIVIMAB\IMDEVIMAB
     Indication: COVID-19
     Dosage: ?          OTHER ROUTE:INJECTED INTO FAT I BELIEVE?
  8. RIZATRIPATAN [Concomitant]
  9. MELATONIN [Concomitant]
     Active Substance: MELATONIN

REACTIONS (15)
  - Vomiting [None]
  - Neck pain [None]
  - Dizziness [None]
  - Tremor [None]
  - Headache [None]
  - Vision blurred [None]
  - Head discomfort [None]
  - Muscle spasticity [None]
  - Swelling face [None]
  - Pyrexia [None]
  - Chest pain [None]
  - Ocular discomfort [None]
  - Pain [None]
  - Movement disorder [None]
  - Blood test abnormal [None]

NARRATIVE: CASE EVENT DATE: 20210904
